FAERS Safety Report 24742539 (Version 2)
Quarter: 2025Q1

REPORT INFORMATION
  Report Type: Spontaneous
  Country: US (occurrence: US)
  Receive Date: 20241217
  Receipt Date: 20250205
  Transmission Date: 20250409
  Serious: Yes (Death)
  Sender: ITALFARMACO SPA
  Company Number: US-ITALFARMACO SPA-2167281

PATIENT
  Age: 11 Year
  Sex: Male
  Weight: 54.6 kg

DRUGS (3)
  1. DUVYZAT [Suspect]
     Active Substance: GIVINOSTAT
     Indication: Duchenne muscular dystrophy
     Dates: start: 20241106
  2. PREDNISONE [Concomitant]
     Active Substance: PREDNISONE
  3. LISINOPRIL [Concomitant]
     Active Substance: LISINOPRIL
     Dates: start: 2023

REACTIONS (2)
  - Disease progression [Fatal]
  - Myalgia [Unknown]

NARRATIVE: CASE EVENT DATE: 20241118
